FAERS Safety Report 12219971 (Version 1)
Quarter: 2016Q1

REPORT INFORMATION
  Report Type: Spontaneous
  Country: None (occurrence: US)
  Receive Date: 20160330
  Receipt Date: 20160330
  Transmission Date: 20160526
  Serious: No
  Sender: FDA-Public Use
  Company Number: US-TEVA-546531USA

PATIENT
  Age: 57 Year
  Sex: Female

DRUGS (1)
  1. CYCLOSPORIN [Suspect]
     Active Substance: CYCLOSPORINE
     Route: 048

REACTIONS (3)
  - Peripheral swelling [Unknown]
  - Weight decreased [Unknown]
  - Incorrect product formulation administered [Unknown]
